FAERS Safety Report 8946854 (Version 2)
Quarter: 2013Q1

REPORT INFORMATION
  Report Type: Spontaneous
  Country: US (occurrence: US)
  Receive Date: 20121204
  Receipt Date: 20130102
  Transmission Date: 20140127
  Serious: No
  Sender: FDA-Public Use
  Company Number: US-AMGEN-USASP2012076925

PATIENT
  Age: 47 Year
  Sex: Male
  Weight: 102.49 kg

DRUGS (6)
  1. ENBREL [Suspect]
     Indication: PSORIASIS
     Dosage: 50 MG, QWK
     Route: 058
     Dates: start: 20090629, end: 20121113
  2. ENBREL [Suspect]
     Indication: PSORIATIC ARTHROPATHY
  3. LOSARTAN [Concomitant]
     Dosage: UNK
  4. PREVACID [Concomitant]
     Dosage: UNK
  5. CARVEDILOL [Concomitant]
     Dosage: UNK
  6. METHOCARBAMOL [Concomitant]
     Dosage: UNK

REACTIONS (10)
  - Epistaxis [Recovered/Resolved]
  - Sleep apnoea syndrome [Unknown]
  - Productive cough [Recovered/Resolved]
  - Wheezing [Recovered/Resolved]
  - Cough [Not Recovered/Not Resolved]
  - Dysphonia [Not Recovered/Not Resolved]
  - Pain in extremity [Not Recovered/Not Resolved]
  - Muscle spasms [Not Recovered/Not Resolved]
  - Skin discolouration [Not Recovered/Not Resolved]
  - Psoriasis [Not Recovered/Not Resolved]
